FAERS Safety Report 5017419-0 (Version None)
Quarter: 2006Q2

REPORT INFORMATION
  Report Type: 
  Country: None (occurrence: None)
  Receive Date: 20060601
  Receipt Date: 20060601
  Transmission Date: 20061013
  Serious: Yes (Death)
  Sender: FDA-Public Use
  Company Number: None

PATIENT
  Age: 62 Year
  Sex: Male
  Weight: 85 kg

DRUGS (1)
  1. SUTENT [Suspect]
     Dosage: 50 MG/DAY
     Dates: start: 20060512, end: 20060525

REACTIONS (6)
  - CONSTIPATION [None]
  - DYSGEUSIA [None]
  - EXSANGUINATION [None]
  - FATIGUE [None]
  - HAEMOPTYSIS [None]
  - YELLOW SKIN [None]
